FAERS Safety Report 9506487 (Version 3)
Quarter: 2013Q4

REPORT INFORMATION
  Report Type: Report from Study
  Country: VE (occurrence: VE)
  Receive Date: 20130906
  Receipt Date: 20131011
  Transmission Date: 20140711
  Serious: Yes (Other)
  Sender: FDA-Public Use
  Company Number: PHHY2013VE098188

PATIENT
  Age: 70 Year
  Sex: Female

DRUGS (10)
  1. ACLASTA [Suspect]
     Indication: OSTEOPOROSIS
     Dosage: 5 MG, ANNUAL
     Route: 042
     Dates: start: 20111108
  2. ACLASTA [Suspect]
     Dosage: 5 MG, UNK
     Route: 042
  3. ACLASTA [Suspect]
     Dosage: 5 MG, UNK
     Route: 042
     Dates: start: 20131004
  4. TEGRETOL [Concomitant]
     Indication: EPILEPSY
     Dosage: SINCE 14 YEARS
  5. HYZAAR [Concomitant]
     Indication: HYPERTENSION
     Dosage: 125 MG, (100-25) MG
     Route: 048
  6. ADALAT [Concomitant]
     Indication: HYPERTENSION
     Dosage: 100 MG, UNK
     Route: 048
     Dates: start: 201308
  7. CORASPIRINA [Concomitant]
     Indication: HYPERTENSION
     Dosage: 1 DF
     Route: 048
  8. CALCIBON D [Concomitant]
     Indication: OSTEOPOROSIS
     Dosage: UNK
     Route: 048
  9. EBIXA [Concomitant]
     Indication: MEMORY IMPAIRMENT
     Dosage: 20 MG
     Route: 048
  10. OMEPRAZOLE [Concomitant]
     Indication: GASTRIC DISORDER
     Dosage: 20 MG
     Route: 048

REACTIONS (5)
  - Tendon rupture [Not Recovered/Not Resolved]
  - Hyperglycaemia [Not Recovered/Not Resolved]
  - Hypercholesterolaemia [Not Recovered/Not Resolved]
  - Hypertriglyceridaemia [Not Recovered/Not Resolved]
  - Malaise [Not Recovered/Not Resolved]
